FAERS Safety Report 17048318 (Version 1)
Quarter: 2019Q4

REPORT INFORMATION
  Report Type: Spontaneous
  Country: US (occurrence: US)
  Receive Date: 20191119
  Receipt Date: 20191119
  Transmission Date: 20200122
  Serious: No
  Sender: FDA-Public Use
  Company Number: US-VERTEX PHARMACEUTICALS-2019-011147

PATIENT
  Age: 36 Year
  Sex: Male

DRUGS (3)
  1. ORKAMBI [Suspect]
     Active Substance: IVACAFTOR\LUMACAFTOR
     Indication: CYSTIC FIBROSIS
     Dosage: UNK
     Route: 048
  2. CIPRO [Suspect]
     Active Substance: CIPROFLOXACIN HYDROCHLORIDE
     Indication: NASOPHARYNGITIS
     Route: 065
  3. LEVAQUIN [Suspect]
     Active Substance: LEVOFLOXACIN
     Indication: NASOPHARYNGITIS
     Route: 065

REACTIONS (7)
  - Tremor [Recovering/Resolving]
  - Depression [Unknown]
  - C-reactive protein increased [Unknown]
  - Thyroid disorder [Unknown]
  - Endocrine disorder [Unknown]
  - Alopecia [Unknown]
  - Nasopharyngitis [Unknown]
